FAERS Safety Report 13285589 (Version 1)
Quarter: 2017Q1

REPORT INFORMATION
  Report Type: Spontaneous
  Country: US (occurrence: US)
  Receive Date: 20170301
  Receipt Date: 20170301
  Transmission Date: 20170428
  Serious: Yes (Disabling, Other)
  Sender: FDA-Public Use
  Company Number: US-LANNETT COMPANY, INC.-US-2017LAN000600

PATIENT

DRUGS (1)
  1. OMEPRAZOLE. [Suspect]
     Active Substance: OMEPRAZOLE
     Indication: PRODUCT USED FOR UNKNOWN INDICATION
     Dosage: UNK, BID

REACTIONS (7)
  - Disability [Unknown]
  - Wheelchair user [Unknown]
  - Renal disorder [Unknown]
  - Paralysis [Unknown]
  - Ill-defined disorder [Unknown]
  - Dementia [Unknown]
  - Cerebrovascular accident [Unknown]
